FAERS Safety Report 14708269 (Version 3)
Quarter: 2018Q4

REPORT INFORMATION
  Report Type: Report from Study
  Country: CO (occurrence: CO)
  Receive Date: 20180403
  Receipt Date: 20181122
  Transmission Date: 20190204
  Serious: Yes (Hospitalization, Other)
  Sender: FDA-Public Use
  Company Number: CO-ASTELLAS-2018US016092

PATIENT
  Age: 53 Year
  Sex: Male
  Weight: 54 kg

DRUGS (2)
  1. INSULIN [Concomitant]
     Active Substance: INSULIN NOS
     Indication: DIABETES MELLITUS
     Dosage: 3 UNITS EVERY 12 HOURS AND 8 UNITS EVERY 12 HOURS, UNKNOWN FREQ.
     Route: 058
  2. TACROLIMUS. [Suspect]
     Active Substance: TACROLIMUS
     Indication: RENAL TRANSPLANT
     Route: 048
     Dates: start: 20171206

REACTIONS (10)
  - Product supply issue [Unknown]
  - Intentional product use issue [Unknown]
  - Urethral disorder [Unknown]
  - Procedural pain [Not Recovered/Not Resolved]
  - Urinary tract disorder [Unknown]
  - Burning sensation [Not Recovered/Not Resolved]
  - Complications of transplant surgery [Unknown]
  - Blood glucose increased [Not Recovered/Not Resolved]
  - Renal haematoma [Not Recovered/Not Resolved]
  - Pruritus [Not Recovered/Not Resolved]

NARRATIVE: CASE EVENT DATE: 20171206
